FAERS Safety Report 21607146 (Version 1)
Quarter: 2022Q4

REPORT INFORMATION
  Report Type: Spontaneous
  Country: DE (occurrence: DE)
  Receive Date: 20221117
  Receipt Date: 20221117
  Transmission Date: 20230113
  Serious: Yes (Hospitalization, Other)
  Sender: FDA-Public Use
  Company Number: DE-ADRED-07949-01

PATIENT
  Age: 78 Year
  Sex: Female

DRUGS (13)
  1. ALLOPURINOL [Suspect]
     Active Substance: ALLOPURINOL
     Indication: Product used for unknown indication
     Dosage: 300 MG, 0.5-0-0-0, TABLETTEN (300MG, 0.5-0-0-0, TABLETS)
     Route: 048
  2. RAMIPRIL [Suspect]
     Active Substance: RAMIPRIL
     Indication: Product used for unknown indication
     Dosage: 2.5 MG, PAUSIERT, TABLETTEN (2.5 MG, SUSPENDED, TABLETS)
     Route: 048
  3. SULFAMETHOXAZOLE\TRIMETHOPRIM [Suspect]
     Active Substance: SULFAMETHOXAZOLE\TRIMETHOPRIM
     Indication: Product used for unknown indication
     Dosage: 400|80 MG, NACH SCHEMA, TABLETTEN (400|80 MG, ACCORDING TO THE SCHEME, TABLETS)
     Route: 048
  4. TORSEMIDE [Suspect]
     Active Substance: TORSEMIDE
     Indication: Product used for unknown indication
     Dosage: 10 MG, 2-0-0-0, TABLETTEN (10 MG, 2-0-0-0, TABLETS)
     Route: 048
  5. POTASSIUM CHLORIDE [Suspect]
     Active Substance: POTASSIUM CHLORIDE
     Indication: Product used for unknown indication
     Dosage: 1565.66 MG, PAUSIERT, BRAUSETABLETTEN (1565.66 MG, PAUSED, EFFERVESCENT TABLETS)
     Route: 048
  6. APIXABAN [Suspect]
     Active Substance: APIXABAN
     Indication: Product used for unknown indication
     Dosage: 2.5 MG, 1-0-1-0, TABLETTEN (2.5 MG, 1-0-1-0, TABLETS)
     Route: 048
  7. LEVOTHYROXINE SODIUM [Concomitant]
     Active Substance: LEVOTHYROXINE SODIUM
     Indication: Product used for unknown indication
     Dosage: 50 ?G, 1-0-0-0, TABLETTEN (50MCG, 1-0-0-0, TABLETS)
     Route: 048
  8. RITUXIMAB [Concomitant]
     Active Substance: RITUXIMAB
     Indication: Product used for unknown indication
     Dosage: 500 MG, NACH SCHEMA, INJEKTIONS-/INFUSIONSL?SUNG (500 MG, ACCORDING TO THE SCHEME, INJECTION/INFUSIO
     Route: 042
  9. METOPROLOL [Concomitant]
     Active Substance: METOPROLOL
     Indication: Product used for unknown indication
     Dosage: 95 MG, 1-0-0-0, RETARD-TABLETTEN (95 MG, 1-0-0-0, PROLONGED-RELEASE TABLETS)
     Route: 048
  10. PREDNISOLONE [Concomitant]
     Active Substance: PREDNISOLONE
     Indication: Product used for unknown indication
     Dosage: 5 MG, 1-0-0-0, TABLETTEN (5 MG, 1-0-0-0, TABLETS)
     Route: 048
  11. Eisen(II)-Komplex [Concomitant]
     Indication: Product used for unknown indication
     Dosage: 100 MG, 0-0-1-0, RETARD-KAPSELN (100 MG, 0-0-1-0, PROLONGED-RELEASE CAPSULES)
     Route: 048
  12. CHOLECALCIFEROL [Concomitant]
     Active Substance: CHOLECALCIFEROL
     Indication: Product used for unknown indication
     Dosage: 20000 IE, NACH SCHEMA, KAPSELN (20000 IU, ACCORDING TO THE SCHEME, CAPSULES)
     Route: 048
  13. PANTOPRAZOLE [Concomitant]
     Active Substance: PANTOPRAZOLE
     Indication: Product used for unknown indication
     Dosage: 40 MG, NACH SCHEMA, RETARD-TABLETTEN (40 MG, ACCORDING TO THE SCHEME, PROLONGED-RELEASE TABLETS)
     Route: 048

REACTIONS (3)
  - General physical health deterioration [Unknown]
  - Acute kidney injury [Unknown]
  - Renal impairment [Unknown]
